FAERS Safety Report 19760898 (Version 1)
Quarter: 2021Q3

REPORT INFORMATION
  Report Type: Spontaneous
  Country: US (occurrence: US)
  Receive Date: 20210828
  Receipt Date: 20210828
  Transmission Date: 20211014
  Serious: Yes (Hospitalization)
  Sender: FDA-Public Use
  Company Number: None

PATIENT
  Age: 78 Year
  Sex: Male
  Weight: 99 kg

DRUGS (12)
  1. CEFDINIR. [Concomitant]
     Active Substance: CEFDINIR
  2. MAGNESIUM [Concomitant]
     Active Substance: MAGNESIUM
  3. VITAMIN C [Concomitant]
     Active Substance: ASCORBIC ACID
  4. HEART LOOP MONITOR [Concomitant]
  5. DILTIAZEM. [Concomitant]
     Active Substance: DILTIAZEM
  6. AZITHROMYCIN ANHYDROUS. [Concomitant]
     Active Substance: AZITHROMYCIN ANHYDROUS
  7. ZICAM (HOMEOPATHICS) [Concomitant]
     Active Substance: HOMEOPATHICS
  8. CASIRIVIMAB AND IMDEVIMAB [Suspect]
     Active Substance: CASIRIVIMAB\IMDEVIMAB
  9. DEXAMETHASONE. [Concomitant]
     Active Substance: DEXAMETHASONE
  10. GAS?X [Concomitant]
     Active Substance: DIMETHICONE
  11. LEVOTHYROXINE. [Concomitant]
     Active Substance: LEVOTHYROXINE
  12. ELLIQUIS [Concomitant]

REACTIONS (15)
  - Balance disorder [None]
  - Movement disorder [None]
  - Hypotension [None]
  - Fatigue [None]
  - Confusional state [None]
  - Oxygen saturation decreased [None]
  - Chills [None]
  - Heart rate abnormal [None]
  - Dyspnoea [None]
  - Coordination abnormal [None]
  - Pyrexia [None]
  - Asthenia [None]
  - Gait disturbance [None]
  - Product quality issue [None]
  - Hyperhidrosis [None]

NARRATIVE: CASE EVENT DATE: 20210827
